FAERS Safety Report 26211285 (Version 1)
Quarter: 2025Q4

REPORT INFORMATION
  Report Type: Spontaneous
  Country: GB (occurrence: GB)
  Receive Date: 20251230
  Receipt Date: 20251230
  Transmission Date: 20260118
  Serious: Yes (Other)
  Sender: ABBVIE
  Company Number: None

PATIENT
  Age: 16 Year
  Sex: Female

DRUGS (1)
  1. ADALIMUMAB [Suspect]
     Active Substance: ADALIMUMAB
     Indication: Crohn^s disease
     Dosage: 1 INJECTION EVERY 2 WEEKS
     Route: 058
     Dates: start: 20250706, end: 20250828

REACTIONS (5)
  - Dermal cyst [Recovered/Resolved]
  - Skin discolouration [Unknown]
  - Medication error [Unknown]
  - Mental disorder [Unknown]
  - Depression [Unknown]

NARRATIVE: CASE EVENT DATE: 20250101
